FAERS Safety Report 9458169 (Version 1)
Quarter: 2013Q3

REPORT INFORMATION
  Report Type: Spontaneous
  Country: US (occurrence: None)
  Receive Date: 20130812
  Receipt Date: 20130812
  Transmission Date: 20140515
  Serious: Yes (Hospitalization, Disabling)
  Sender: FDA-Public Use
  Company Number: None

PATIENT
  Age: 66 Year
  Sex: Female
  Weight: 47.17 kg

DRUGS (1)
  1. CIMZIA (CERTOLIZUMAB PEGOL) [Suspect]
     Indication: RHEUMATOID ARTHRITIS
     Dosage: BY INJECTION AT DOCTORS OFFICE
     Dates: start: 20121123, end: 20130301

REACTIONS (3)
  - Nasopharyngitis [None]
  - Dyspnoea [None]
  - Interstitial lung disease [None]
